FAERS Safety Report 6079292-1 (Version None)
Quarter: 2009Q1

REPORT INFORMATION
  Report Type: 
  Country: None (occurrence: None)
  Receive Date: 20090216
  Receipt Date: 20090203
  Transmission Date: 20090719
  Serious: Yes (Death)
  Sender: FDA-Public Use
  Company Number: MX-ROCHE-612511

PATIENT
  Sex: Male
  Weight: 69 kg

DRUGS (3)
  1. METHOXY POLYETHYLENE GLYCOL-EPOETIN BETA [Suspect]
     Route: 058
     Dates: start: 20081024, end: 20090116
  2. BI-EUGLUCON [Concomitant]
     Dates: start: 20030101
  3. ENALAPRIL [Concomitant]
     Dates: start: 20030101

REACTIONS (1)
  - DEATH [None]
